FAERS Safety Report 4977273-X (Version None)
Quarter: 2006Q2

REPORT INFORMATION
  Report Type: 
  Country: None (occurrence: None)
  Receive Date: 20060419
  Receipt Date: 20050415
  Transmission Date: 20061013
  Serious: Yes (Death, Other)
  Sender: FDA-Public Use
  Company Number: US-MERCK-0504USA03348

PATIENT
  Age: 25 Year
  Sex: Male
  Weight: 72 kg

DRUGS (1)
  1. VIOXX [Suspect]
     Indication: PAIN IN EXTREMITY
     Route: 048
     Dates: start: 20000101, end: 20030416

REACTIONS (12)
  - BLOOD PRESSURE IMMEASURABLE [None]
  - CARDIAC ARREST [None]
  - CARDIO-RESPIRATORY ARREST [None]
  - CARDIOMEGALY [None]
  - CONVULSION [None]
  - CYANOSIS [None]
  - ELECTROMECHANICAL DISSOCIATION [None]
  - HEPATIC FIBROSIS [None]
  - HERPES SIMPLEX SEROLOGY POSITIVE [None]
  - LOSS OF CONSCIOUSNESS [None]
  - PUPIL FIXED [None]
  - VOMITING [None]
